FAERS Safety Report 20499987 (Version 1)
Quarter: 2022Q1

REPORT INFORMATION
  Report Type: Spontaneous
  Country: US (occurrence: US)
  Receive Date: 20220222
  Receipt Date: 20220222
  Transmission Date: 20220423
  Serious: No
  Sender: FDA-Public Use
  Company Number: US-UCBSA-2021047341

PATIENT
  Age: 58 Year
  Sex: Female

DRUGS (10)
  1. LACOSAMIDE [Suspect]
     Active Substance: LACOSAMIDE
     Indication: Status epilepticus
     Dosage: UNK
  2. LACOSAMIDE [Suspect]
     Active Substance: LACOSAMIDE
     Indication: Off label use
  3. LEVETIRACETAM [Suspect]
     Active Substance: LEVETIRACETAM
     Indication: Status epilepticus
     Dosage: UNK
  4. LEVETIRACETAM [Suspect]
     Active Substance: LEVETIRACETAM
     Indication: Off label use
  5. LORAZEPAM [Concomitant]
     Active Substance: LORAZEPAM
     Indication: Status epilepticus
     Dosage: UNK
  6. MIDAZOLAM [Concomitant]
     Active Substance: MIDAZOLAM
     Indication: Status epilepticus
     Dosage: UNK
  7. VALPROIC ACID [Concomitant]
     Active Substance: VALPROIC ACID
     Indication: Status epilepticus
     Dosage: UNK
  8. PROPOFOL [Concomitant]
     Active Substance: PROPOFOL
     Indication: Status epilepticus
     Dosage: UNK
  9. DALFAMPRIDINE [Concomitant]
     Active Substance: DALFAMPRIDINE
     Indication: Multiple sclerosis
     Dosage: UNK
  10. TERIFLUNOMIDE [Concomitant]
     Active Substance: TERIFLUNOMIDE
     Indication: Multiple sclerosis
     Dosage: UNK

REACTIONS (1)
  - No adverse event [Unknown]
